FAERS Safety Report 9768642 (Version 1)
Quarter: 2013Q4

REPORT INFORMATION
  Report Type: Spontaneous
  Country: US (occurrence: US)
  Receive Date: 20131218
  Receipt Date: 20131218
  Transmission Date: 20140711
  Serious: No
  Sender: FDA-Public Use
  Company Number: US-009507513-1312USA006045

PATIENT
  Age: 36 Year
  Sex: Female

DRUGS (2)
  1. SAPHRIS [Suspect]
     Indication: BIPOLAR I DISORDER
     Dosage: 10 MG, BID
     Route: 060
  2. SAPHRIS [Suspect]
     Dosage: 5 MG
     Route: 060

REACTIONS (2)
  - Hyperhidrosis [Recovering/Resolving]
  - Underdose [Unknown]
